FAERS Safety Report 12470884 (Version 1)
Quarter: 2016Q2

REPORT INFORMATION
  Report Type: Report from Study
  Country: US (occurrence: US)
  Receive Date: 20160616
  Receipt Date: 20160616
  Transmission Date: 20160815
  Serious: Yes (Other)
  Sender: FDA-Public Use
  Company Number: US-AMGEN-USASL2016075086

PATIENT
  Age: 75 Year
  Sex: Female

DRUGS (1)
  1. PROLIA [Suspect]
     Active Substance: DENOSUMAB
     Indication: PRODUCT USED FOR UNKNOWN INDICATION
     Dosage: UNK
     Route: 065

REACTIONS (5)
  - Uterine prolapse [Unknown]
  - Arthralgia [Recovering/Resolving]
  - Cystitis [Unknown]
  - Pain in extremity [Recovering/Resolving]
  - Nervous system disorder [Unknown]

NARRATIVE: CASE EVENT DATE: 201603
